FAERS Safety Report 6190500-9 (Version None)
Quarter: 2009Q2

REPORT INFORMATION
  Report Type: 
  Country: None (occurrence: None)
  Receive Date: 20090513
  Receipt Date: 20090513
  Transmission Date: 20091009
  Serious: No
  Sender: FDA-Public Use
  Company Number: None

PATIENT
  Sex: Male
  Weight: 104.3273 kg

DRUGS (2)
  1. TRAZODONE HCL [Suspect]
     Indication: INSOMNIA
     Dosage: 50MG ONCE NIGHTLY
     Dates: start: 20090416
  2. TRAZODONE HCL [Suspect]
     Dates: start: 20090410

REACTIONS (5)
  - DRUG DISPENSING ERROR [None]
  - DRUG INEFFECTIVE [None]
  - INITIAL INSOMNIA [None]
  - PRODUCT COUNTERFEIT [None]
  - PRODUCT QUALITY ISSUE [None]
